FAERS Safety Report 15278957 (Version 5)
Quarter: 2020Q3

REPORT INFORMATION
  Report Type: Spontaneous
  Country: US (occurrence: US)
  Receive Date: 20180815
  Receipt Date: 20200826
  Transmission Date: 20201102
  Serious: No
  Sender: FDA-Public Use
  Company Number: US-BIOGEN-2017BI00416933

PATIENT
  Sex: Male

DRUGS (2)
  1. TYSABRI [Suspect]
     Active Substance: NATALIZUMAB
     Indication: MULTIPLE SCLEROSIS
     Dosage: INFUSED OVER 1 HOUR
     Route: 050
  2. TYSABRI [Suspect]
     Active Substance: NATALIZUMAB
     Dosage: INFUSED OVER 1 HOUR
     Route: 050
     Dates: start: 20150520, end: 20180508

REACTIONS (15)
  - Balance disorder [Unknown]
  - Muscular weakness [Not Recovered/Not Resolved]
  - Hypotonia [Unknown]
  - Pain in extremity [Unknown]
  - Cognitive disorder [Unknown]
  - Vision blurred [Not Recovered/Not Resolved]
  - Strabismus [Not Recovered/Not Resolved]
  - Musculoskeletal disorder [Unknown]
  - Memory impairment [Not Recovered/Not Resolved]
  - Visual impairment [Not Recovered/Not Resolved]
  - Asthenia [Unknown]
  - Feeling hot [Unknown]
  - Multiple sclerosis relapse [Not Recovered/Not Resolved]
  - Road traffic accident [Recovered/Resolved]
  - Confusional state [Not Recovered/Not Resolved]

NARRATIVE: CASE EVENT DATE: 2017
